FAERS Safety Report 6794772-9 (Version None)
Quarter: 2010Q2

REPORT INFORMATION
  Report Type: 
  Country: None (occurrence: None)
  Receive Date: 20100625
  Receipt Date: 20100610
  Transmission Date: 20101027
  Serious: Yes (Hospitalization)
  Sender: FDA-Public Use
  Company Number: IE-MEDIMMUNE-MEDI-0009683

PATIENT
  Sex: Male
  Weight: 8.5 kg

DRUGS (1)
  1. SYNAGIS [Suspect]
     Route: 030

REACTIONS (1)
  - MENINGITIS VIRAL [None]
